FAERS Safety Report 25912515 (Version 2)
Quarter: 2025Q4

REPORT INFORMATION
  Report Type: Report from Study
  Country: CA (occurrence: CA)
  Receive Date: 20251013
  Receipt Date: 20251014
  Transmission Date: 20260117
  Serious: Yes (Death)
  Sender: ROCHE
  Company Number: CA-ROCHE-10000408232

PATIENT
  Age: 78 Year
  Sex: Female

DRUGS (1)
  1. VABYSMO [Suspect]
     Active Substance: FARICIMAB-SVOA
     Indication: Retinal vein occlusion
     Dosage: MORE DOSAGE INFORMATION IS 6MG/00.05ML, PRE-FILLED SYRINGE.
     Route: 050
     Dates: start: 20250903

REACTIONS (1)
  - Death [Fatal]
